FAERS Safety Report 17165469 (Version 1)
Quarter: 2019Q4

REPORT INFORMATION
  Report Type: Report from Study
  Country: US (occurrence: US)
  Receive Date: 20191217
  Receipt Date: 20191217
  Transmission Date: 20200122
  Serious: Yes (Death, Hospitalization)
  Sender: FDA-Public Use
  Company Number: US-TEVA-2019-US-1153106

PATIENT
  Age: 61 Year
  Sex: Female

DRUGS (2)
  1. DILTIAZEM. [Suspect]
     Active Substance: DILTIAZEM
     Indication: PRODUCT USED FOR UNKNOWN INDICATION
     Route: 065
  2. FLUOXETINE [Suspect]
     Active Substance: FLUOXETINE HYDROCHLORIDE
     Indication: PRODUCT USED FOR UNKNOWN INDICATION
     Route: 065

REACTIONS (9)
  - Tachycardia [Fatal]
  - Toxicity to various agents [Fatal]
  - Coma [Fatal]
  - Metabolic acidosis [Fatal]
  - Depressed level of consciousness [Fatal]
  - Hypertension [Fatal]
  - Bradycardia [Fatal]
  - Hypotension [Fatal]
  - Seizure [Fatal]
